FAERS Safety Report 18416986 (Version 2)
Quarter: 2020Q4

REPORT INFORMATION
  Report Type: Spontaneous
  Country: US (occurrence: US)
  Receive Date: 20201022
  Receipt Date: 20201029
  Transmission Date: 20210114
  Serious: No
  Sender: FDA-Public Use
  Company Number: US-PFIZER INC-2020407624

PATIENT
  Age: 56 Year
  Sex: Male

DRUGS (3)
  1. EMEND [Suspect]
     Active Substance: APREPITANT
     Dosage: UNK
  2. DEXAMETHASONE. [Suspect]
     Active Substance: DEXAMETHASONE
     Dosage: UNK
  3. ATROPINE SULFATE. [Suspect]
     Active Substance: ATROPINE SULFATE
     Dosage: UNK

REACTIONS (3)
  - Dizziness [Unknown]
  - Headache [Unknown]
  - Nausea [Unknown]
